FAERS Safety Report 4324863-3 (Version None)
Quarter: 2004Q1

REPORT INFORMATION
  Report Type: 
  Country: None (occurrence: None)
  Receive Date: 20040322
  Receipt Date: 20040308
  Transmission Date: 20041129
  Serious: Yes (Hospitalization)
  Sender: FDA-Public Use
  Company Number: 2004000902

PATIENT
  Age: 85 Year
  Sex: Female

DRUGS (13)
  1. LIPITOR [Suspect]
     Indication: HYPERLIPIDAEMIA
     Dosage: 20 MG (DAILY), ORAL
     Route: 048
     Dates: start: 20031209, end: 20031224
  2. FERROUS CITRATE [Suspect]
     Indication: ANAEMIA
     Dosage: 100 MG (TWICE DAILY), ORAL
     Route: 048
     Dates: start: 20031219, end: 20031224
  3. NITROGLYCERIN [Concomitant]
  4. FUROSEMIDE [Concomitant]
  5. PIMOBENDAN (PIMOBENDAN) [Concomitant]
  6. AMLODIPINE BESYLATE [Concomitant]
  7. SPIRONOLACTONE [Concomitant]
  8. AZOSEMIDE (AZOSEMIDE) [Concomitant]
  9. DIGOXIN [Concomitant]
  10. BUFFERIN [Concomitant]
  11. TEPRENONE (TEPRENONE) [Concomitant]
  12. ZOPICLONE (ZOPICLONE) [Concomitant]
  13. ISOSORBIDE DINITRATE [Concomitant]

REACTIONS (10)
  - ALANINE AMINOTRANSFERASE INCREASED [None]
  - ASPARTATE AMINOTRANSFERASE INCREASED [None]
  - BLOOD ALKALINE PHOSPHATASE INCREASED [None]
  - BLOOD CREATINE PHOSPHOKINASE MB INCREASED [None]
  - BLOOD LACTATE DEHYDROGENASE INCREASED [None]
  - BLOOD SODIUM DECREASED [None]
  - BLOOD UREA INCREASED [None]
  - CHEST PAIN [None]
  - CORONARY ARTERY STENOSIS [None]
  - LIVER DISORDER [None]
